FAERS Safety Report 8166854-0 (Version None)
Quarter: 2012Q1

REPORT INFORMATION
  Report Type: 
  Country: None (occurrence: None)
  Receive Date: 20120221
  Receipt Date: 20120206
  Transmission Date: 20120608
  Serious: Yes (Hospitalization)
  Sender: FDA-Public Use
  Company Number: 1000027461

PATIENT
  Age: 46 Year
  Sex: Female

DRUGS (6)
  1. ABILIFY [Suspect]
     Indication: SCHIZOAFFECTIVE DISORDER
     Dosage: 5 MG (5 MG, 1 IN 1 D)
  2. ABILIFY [Suspect]
     Indication: SCHIZOAFFECTIVE DISORDER
     Dosage: 10 MG (10 MG, 1 IN 1 D)
     Dates: start: 20110920, end: 20120111
  3. ESCITALOPRAM OXALATE [Suspect]
     Indication: DEPRESSION
     Dosage: 20 (20 MG, 1 IN1 D) ORAL
     Route: 048
     Dates: start: 20110712, end: 20110919
  4. ESCITALOPRAM OXALATE [Suspect]
     Indication: ANXIETY
     Dosage: 20 (20 MG, 1 IN1 D) ORAL
     Route: 048
     Dates: start: 20110712, end: 20110919
  5. ESCITALOPRAM OXALATE [Suspect]
     Indication: DEPRESSION
     Dosage: 20 (20 MG, 1 IN1 D) ORAL
     Route: 048
     Dates: start: 20110920
  6. ESCITALOPRAM OXALATE [Suspect]
     Indication: ANXIETY
     Dosage: 20 (20 MG, 1 IN1 D) ORAL
     Route: 048
     Dates: start: 20110920

REACTIONS (4)
  - AMNESIA [None]
  - CONVULSION [None]
  - COUGH [None]
  - VIITH NERVE PARALYSIS [None]
